FAERS Safety Report 8868898 (Version 1)
Quarter: 2012Q4

REPORT INFORMATION
  Report Type: 
  Country: US (occurrence: US)
  Receive Date: 20121027
  Receipt Date: 20121027
  Transmission Date: 20130627
  Serious: No
  Sender: FDA-Public Use
  Company Number: US-009507513-1210USA007676

PATIENT
  Sex: Female

DRUGS (1)
  1. PEGINTRON [Suspect]
     Indication: POLYCYTHAEMIA VERA
     Dosage: 99 Microgram, qw
     Route: 058
     Dates: start: 2012, end: 201209

REACTIONS (1)
  - Disease progression [Unknown]
